FAERS Safety Report 19027343 (Version 1)
Quarter: 2021Q1

REPORT INFORMATION
  Report Type: Spontaneous
  Country: CA (occurrence: CA)
  Receive Date: 20210318
  Receipt Date: 20210318
  Transmission Date: 20210420
  Serious: Yes (Life-Threatening, Hospitalization, Other)
  Sender: FDA-Public Use
  Company Number: CA-PFIZER INC-2021282425

PATIENT
  Age: 4 Year
  Sex: Female
  Weight: 20 kg

DRUGS (10)
  1. OMEPRAZOLE. [Concomitant]
     Active Substance: OMEPRAZOLE
  2. DAUNORUBICIN HYDROCHLORIDE. [Suspect]
     Active Substance: DAUNORUBICIN HYDROCHLORIDE
     Indication: ACUTE MYELOID LEUKAEMIA
     Dosage: 40 MG, ALTERNATE DAY (1 EVERY 2 DAYS)
     Route: 042
  3. ETOPOSIDE. [Concomitant]
     Active Substance: ETOPOSIDE
  4. METHOTREXATE. [Concomitant]
     Active Substance: METHOTREXATE
  5. LEVOFLOXACIN. [Concomitant]
     Active Substance: LEVOFLOXACIN
  6. SEPTRA [Concomitant]
     Active Substance: SULFAMETHOXAZOLE\TRIMETHOPRIM
  7. CYTARABINE. [Suspect]
     Active Substance: CYTARABINE
     Indication: ACUTE MYELOID LEUKAEMIA
     Dosage: 80 MG, 2X/DAY (1 EVERY 12 HOURS)
     Route: 042
  8. CASPOFUNGIN [Concomitant]
     Active Substance: CASPOFUNGIN
  9. ZINECARD [Concomitant]
     Active Substance: DEXRAZOXANE HYDROCHLORIDE
  10. ONDANSETRON [Concomitant]
     Active Substance: ONDANSETRON

REACTIONS (2)
  - Febrile neutropenia [Unknown]
  - SARS-CoV-2 test negative [Unknown]
